FAERS Safety Report 13170349 (Version 1)
Quarter: 2017Q1

REPORT INFORMATION
  Report Type: Spontaneous
  Country: US (occurrence: US)
  Receive Date: 20170201
  Receipt Date: 20170201
  Transmission Date: 20170428
  Serious: Yes (Death, Other)
  Sender: FDA-Public Use
  Company Number: US-ZYDUS-013483

PATIENT
  Age: 5 Decade
  Sex: Male

DRUGS (1)
  1. SIMVASTATIN. [Suspect]
     Active Substance: SIMVASTATIN
     Indication: HYPERLIPIDAEMIA
     Route: 065

REACTIONS (27)
  - Dissociation [Unknown]
  - Confusional state [Unknown]
  - Adjustment disorder [Unknown]
  - Disturbance in attention [Unknown]
  - Alanine aminotransferase increased [Unknown]
  - Decreased interest [Unknown]
  - Social avoidant behaviour [Unknown]
  - Performance status decreased [Unknown]
  - Chest discomfort [Unknown]
  - Depression [Unknown]
  - Depressed mood [Unknown]
  - Cognitive disorder [Unknown]
  - Rash [Unknown]
  - Aggression [Unknown]
  - Irritability [Unknown]
  - Skin irritation [Unknown]
  - Insomnia [Unknown]
  - Anxiety [Unknown]
  - Impatience [Unknown]
  - Non-alcoholic fatty liver [Unknown]
  - Nausea [Unknown]
  - Completed suicide [Fatal]
  - Personality change [Unknown]
  - Abnormal behaviour [Unknown]
  - Fatigue [Unknown]
  - Temperature regulation disorder [Unknown]
  - Stress at work [Unknown]
